FAERS Safety Report 25540869 (Version 1)
Quarter: 2025Q3

REPORT INFORMATION
  Report Type: Spontaneous
  Country: KR (occurrence: KR)
  Receive Date: 20250710
  Receipt Date: 20250710
  Transmission Date: 20251020
  Serious: Yes (Other)
  Sender: ELI LILLY AND COMPANY
  Company Number: KR-ELI_LILLY_AND_COMPANY-KR202507003548

PATIENT
  Sex: Male

DRUGS (3)
  1. TRULICITY [Suspect]
     Active Substance: DULAGLUTIDE
     Indication: Diabetes mellitus
     Route: 065
  2. TRULICITY [Suspect]
     Active Substance: DULAGLUTIDE
     Route: 065
  3. INSULIN BEEF [Concomitant]
     Active Substance: INSULIN BEEF
     Indication: Diabetes mellitus

REACTIONS (3)
  - Weight decreased [Recovered/Resolved]
  - Arthralgia [Not Recovered/Not Resolved]
  - Asthenia [Recovered/Resolved]
